FAERS Safety Report 24291899 (Version 1)
Quarter: 2024Q3

REPORT INFORMATION
  Report Type: Spontaneous
  Country: MY (occurrence: MY)
  Receive Date: 20240906
  Receipt Date: 20240906
  Transmission Date: 20241017
  Serious: Yes (Life-Threatening, Other)
  Sender: DAIICHI
  Company Number: MY-AstraZeneca-2024A199331

PATIENT
  Sex: Male

DRUGS (1)
  1. TRASTUZUMAB DERUXTECAN [Suspect]
     Active Substance: TRASTUZUMAB DERUXTECAN
     Indication: Non-small cell lung cancer
     Dosage: UNK
     Route: 041

REACTIONS (5)
  - Hypersensitivity [Recovering/Resolving]
  - Infusion related reaction [Unknown]
  - Pyrexia [Unknown]
  - Chills [Unknown]
  - Oxygen saturation decreased [Unknown]

NARRATIVE: CASE EVENT DATE: 20240901
